FAERS Safety Report 18775045 (Version 3)
Quarter: 2021Q2

REPORT INFORMATION
  Report Type: Report from Study
  Country: NO (occurrence: NO)
  Receive Date: 20210122
  Receipt Date: 20210517
  Transmission Date: 20210717
  Serious: Yes (Hospitalization)
  Sender: FDA-Public Use
  Company Number: NO-ROCHE-2754747

PATIENT
  Age: 77 Year
  Sex: Male
  Weight: 88 kg

DRUGS (25)
  1. ETOPOSIDE. [Suspect]
     Active Substance: ETOPOSIDE
     Indication: SMALL CELL LUNG CANCER
     Dosage: DATE OF  FIRST DAY OF LAST COURSE OF ETOPOSIDE PRIOR TO SAE ONSET: 28/OCT/2020?NO OF COURSES: 4
     Route: 065
     Dates: start: 20200819, end: 20201028
  2. ALBYL?E [Concomitant]
     Active Substance: ASPIRIN\MAGNESIUM OXIDE
  3. SERETIDE [Concomitant]
     Active Substance: FLUTICASONE PROPIONATE\SALMETEROL XINAFOATE
     Indication: CHRONIC OBSTRUCTIVE PULMONARY DISEASE
     Dosage: 2*2?AEROSOL 25/250 MCG/DOSE
  4. BRONKYL [Concomitant]
     Indication: CHRONIC OBSTRUCTIVE PULMONARY DISEASE
  5. VENTOLINE [Concomitant]
     Active Substance: ALBUTEROL
  6. INCRUSE ELLIPTA [Concomitant]
     Active Substance: UMECLIDINIUM BROMIDE
     Indication: CHRONIC OBSTRUCTIVE PULMONARY DISEASE
     Dosage: 55 MCG/DOSE 1*1
  7. DUPHALAC [Concomitant]
     Active Substance: LACTULOSE
     Dosage: 667 MG/ML?15 ML*2
  8. ZOFRAN [Concomitant]
     Active Substance: ONDANSETRON HYDROCHLORIDE
     Dosage: 1?2*2?3?ANTIEMETIC
  9. METOPROLOL. [Concomitant]
     Active Substance: METOPROLOL
     Indication: HYPERTENSION
  10. PARALGIN FORTE [Concomitant]
     Indication: ANALGESIC THERAPY
     Dosage: 400/30 MG?1*4
  11. VENTOLINE [Concomitant]
     Active Substance: ALBUTEROL
     Indication: CHRONIC OBSTRUCTIVE PULMONARY DISEASE
     Dosage: AEROSOL 0.1 MG/DOSE?1?2*4
  12. VIAGRA [Concomitant]
     Active Substance: SILDENAFIL CITRATE
     Indication: ERECTILE DYSFUNCTION
     Dosage: 50?100 MG
  13. VICTOZA [Concomitant]
     Active Substance: LIRAGLUTIDE
     Indication: DIABETES MELLITUS
     Dosage: STRENGTH: 6 MG/ML?1.8 MG*1
  14. PARACET (NORWAY) [Concomitant]
  15. ATEZOLIZUMAB. [Suspect]
     Active Substance: ATEZOLIZUMAB
     Indication: SMALL CELL LUNG CANCER
     Dosage: DATE OF LAST DOSE OF ATEZOLIZUMAB PRIOR TO SAE ONSET: 28/JAN/2021 AND 16/FEB/2021?NO OF COURSES: 4
     Route: 042
     Dates: start: 20201207
  16. AMLODIPINE [Concomitant]
     Active Substance: AMLODIPINE BESYLATE
     Indication: HYPERTENSION
     Dosage: 5 MG*1
  17. AFIPRAN [Concomitant]
     Active Substance: METOCLOPRAMIDE HYDROCHLORIDE
     Dosage: ANTIEMETIC?10MG*3
  18. SIMVASTATIN. [Concomitant]
     Active Substance: SIMVASTATIN
     Dosage: 40 MG X 1
  19. PLATINUM [Suspect]
     Active Substance: PLATINUM
     Indication: SMALL CELL LUNG CANCER
     Dosage: DATE OF FIRST DAY OF LAST COURSE OF PLATINUM PRIOR TO SAE ONSET: 28/OCT/2020?NO OF COURSES: 4
     Route: 065
     Dates: start: 20200819, end: 20201028
  20. METFORMIN [Concomitant]
     Active Substance: METFORMIN HYDROCHLORIDE
     Indication: DIABETES MELLITUS
     Dosage: 500 MG*1
  21. PARACETAMOL [Concomitant]
     Active Substance: ACETAMINOPHEN
     Indication: ANALGESIC THERAPY
     Dosage: 1 G*4
  22. ACETYLCYSTEIN [Concomitant]
     Active Substance: ACETYLCYSTEINE
     Indication: CHRONIC OBSTRUCTIVE PULMONARY DISEASE
     Dosage: 200MG*3
  23. CLOXACILLIN [Concomitant]
     Active Substance: CLOXACILLIN
     Indication: PNEUMONIA
  24. NORADRENALIN [Concomitant]
     Active Substance: NOREPINEPHRINE\NOREPINEPHRINE BITARTRATE
     Indication: SEPSIS
     Dates: start: 20210505, end: 20210506
  25. GENTAMYCIN [Concomitant]
     Active Substance: GENTAMICIN
     Indication: PNEUMONIA
     Dates: start: 20210505, end: 20210507

REACTIONS (2)
  - Bronchitis [Not Recovered/Not Resolved]
  - Bronchitis [Not Recovered/Not Resolved]

NARRATIVE: CASE EVENT DATE: 20210111
